FAERS Safety Report 14375903 (Version 5)
Quarter: 2018Q2

REPORT INFORMATION
  Report Type: Report from Study
  Country: IL (occurrence: IL)
  Receive Date: 20180111
  Receipt Date: 20180423
  Transmission Date: 20180711
  Serious: Yes (Hospitalization, Disabling, Other)
  Sender: FDA-Public Use
  Company Number: PHHY2018IL002919

PATIENT
  Age: 56 Year
  Sex: Female

DRUGS (2)
  1. AFINITOR [Suspect]
     Active Substance: EVEROLIMUS
     Indication: BREAST CANCER
     Dosage: 5 MG, QD
     Route: 048
     Dates: start: 20171221, end: 20180121
  2. RECLAST [Suspect]
     Active Substance: ZOLEDRONIC ACID
     Indication: PRODUCT USED FOR UNKNOWN INDICATION
     Dosage: UNK
     Route: 065
     Dates: start: 20171206

REACTIONS (10)
  - Malignant neoplasm progression [Unknown]
  - Pulmonary oedema [Unknown]
  - Metastases to central nervous system [Unknown]
  - Breast cancer [Unknown]
  - Asthenia [Unknown]
  - Cough [Not Recovered/Not Resolved]
  - Vomiting [Recovered/Resolved]
  - Pleural effusion [Not Recovered/Not Resolved]
  - Pneumonia [Unknown]
  - Gait disturbance [Not Recovered/Not Resolved]

NARRATIVE: CASE EVENT DATE: 20180107
